FAERS Safety Report 19278182 (Version 3)
Quarter: 2021Q3

REPORT INFORMATION
  Report Type: Other
  Country: DE (occurrence: DE)
  Receive Date: 20210520
  Receipt Date: 20210915
  Transmission Date: 20211014
  Serious: Yes (Other)
  Sender: FDA-Public Use
  Company Number: DE-ROCHE-2832532

PATIENT
  Sex: Female

DRUGS (10)
  1. L?THYROXINE [Concomitant]
     Active Substance: LEVOTHYROXINE
  2. OCREVUS [Suspect]
     Active Substance: OCRELIZUMAB
     Route: 042
     Dates: start: 20210504
  3. L?THYROXINE [Concomitant]
     Active Substance: LEVOTHYROXINE
  4. DEKRISTOL [Concomitant]
     Active Substance: CHOLECALCIFEROL
  5. MAITALON [Concomitant]
  6. DEKRISTOL [Concomitant]
     Active Substance: CHOLECALCIFEROL
     Route: 065
  7. SUMATRIPTAN. [Concomitant]
     Active Substance: SUMATRIPTAN
  8. OCREVUS [Suspect]
     Active Substance: OCRELIZUMAB
     Indication: RELAPSING-REMITTING MULTIPLE SCLEROSIS
     Route: 042
     Dates: start: 20210420
  9. MAGNESIUM [Concomitant]
     Active Substance: MAGNESIUM
  10. IBUPROFEN. [Concomitant]
     Active Substance: IBUPROFEN
     Dosage: AS REQUIRED

REACTIONS (4)
  - Infection susceptibility increased [Recovered/Resolved]
  - Drug ineffective [Unknown]
  - Migraine [Recovered/Resolved]
  - Multiple sclerosis relapse [Not Recovered/Not Resolved]

NARRATIVE: CASE EVENT DATE: 20210504
